FAERS Safety Report 8821617 (Version 4)
Quarter: 2013Q4

REPORT INFORMATION
  Report Type: Spontaneous
  Country: FR (occurrence: DE)
  Receive Date: 20121002
  Receipt Date: 20131030
  Transmission Date: 20140711
  Serious: Yes (Other)
  Sender: FDA-Public Use
  Company Number: FR-ALEXION-A201201784

PATIENT
  Age: 7 Year
  Sex: Male

DRUGS (9)
  1. SOLIRIS 300MG [Suspect]
     Indication: HAEMOLYTIC URAEMIC SYNDROME
     Dosage: 600 MG, SINGLE ON DAY OF SURGERY
     Route: 042
  2. SOLIRIS 300MG [Suspect]
     Dosage: 300 MG, QW
     Route: 042
  3. SOLIRIS 300MG [Suspect]
     Dosage: 300 MG, Q2W
     Route: 042
  4. SOLIRIS 300MG [Suspect]
     Dosage: 600 MG, QW TRANSIENT X3
  5. SOLIRIS 300MG [Suspect]
     Dosage: 300 MG, QW RESUMED
     Route: 042
  6. BASILIXIMAB [Concomitant]
     Indication: IMMUNOSUPPRESSION
  7. TACROLIMUS [Concomitant]
     Indication: IMMUNOSUPPRESSION
  8. MYCOPHENOLATE MOFETIL [Concomitant]
     Indication: IMMUNOSUPPRESSION
  9. STEROID ANTIBACTERIALS [Concomitant]
     Indication: IMMUNOSUPPRESSION

REACTIONS (4)
  - BK virus infection [Unknown]
  - Renal tubular necrosis [Unknown]
  - Upper respiratory tract infection [Unknown]
  - Off label use [Unknown]
